FAERS Safety Report 9610581 (Version 1)
Quarter: 2013Q4

REPORT INFORMATION
  Report Type: Spontaneous
  Country: DE (occurrence: DE)
  Receive Date: 20131009
  Receipt Date: 20131009
  Transmission Date: 20140711
  Serious: Yes (Other)
  Sender: FDA-Public Use
  Company Number: DE-BRISTOL-MYERS SQUIBB COMPANY-19490564

PATIENT
  Sex: Male

DRUGS (2)
  1. ELIQUIS [Suspect]
  2. ASS 100 [Concomitant]
     Dosage: MORNING

REACTIONS (1)
  - Femoral artery occlusion [Unknown]
